FAERS Safety Report 8388648 (Version 5)
Quarter: 2012Q4

REPORT INFORMATION
  Report Type: 
  Country: JP (occurrence: JP)
  Receive Date: 20120203
  Receipt Date: 20121105
  Transmission Date: 20130627
  Serious: Yes (Death, Life-Threatening, Hospitalization, Other)
  Sender: FDA-Public Use
  Company Number: JP-EISAI INC-E7389-01983-SPO-JP

PATIENT
  Age: 63 Year
  Sex: Female

DRUGS (13)
  1. HALAVEN [Suspect]
     Indication: BREAST CANCER
     Route: 041
     Dates: start: 20111215, end: 20120719
  2. DEXART [Concomitant]
     Indication: ANTIEMETIC SUPPORTIVE CARE
     Route: 042
     Dates: start: 20070810, end: 20120719
  3. MS CONTIN [Concomitant]
     Indication: NEUROGENIC PAIN
     Route: 048
     Dates: start: 20070808, end: 20120725
  4. ARIMIDEX [Concomitant]
     Indication: BREAST CANCER
     Route: 048
     Dates: start: 20071003, end: 20120725
  5. LOXOPROFEN [Concomitant]
     Indication: NEUROGENIC PAIN
     Route: 048
     Dates: start: 20070807, end: 20120725
  6. GASPORT-D [Concomitant]
     Indication: GASTRITIS PROPHYLAXIS
     Route: 048
     Dates: start: 20100527, end: 20120725
  7. PREGABALIN [Concomitant]
     Indication: NEUROGENIC PAIN
     Route: 048
     Dates: start: 20120405, end: 20120725
  8. DEPAS [Concomitant]
     Indication: INSOMNIA
     Route: 048
     Dates: start: 20070813, end: 20120725
  9. PYRINAZIN [Concomitant]
     Indication: NEUROGENIC PAIN
     Route: 048
     Dates: start: 20111010, end: 20120725
  10. OPSO [Concomitant]
     Indication: NEUROGENIC PAIN
     Route: 048
     Dates: start: 20070817, end: 20120725
  11. VOLTAREN [Concomitant]
     Indication: NEUROGENIC PAIN
     Route: 054
     Dates: start: 20100722, end: 20120725
  12. PRIMPERAN [Concomitant]
     Indication: VOMITING PROPHYLAXIS
     Route: 048
     Dates: start: 20080729, end: 20120725
  13. ORADOL [Concomitant]
     Indication: STOMATITIS
     Route: 048
     Dates: start: 20120712, end: 20120718

REACTIONS (4)
  - Sepsis [Fatal]
  - Thrombocytopenia [Not Recovered/Not Resolved]
  - Leukopenia [Not Recovered/Not Resolved]
  - Infection [Unknown]
